FAERS Safety Report 7875599-3 (Version None)
Quarter: 2011Q4

REPORT INFORMATION
  Report Type: 
  Country: None (occurrence: None)
  Receive Date: 20111031
  Receipt Date: 20111017
  Transmission Date: 20120403
  Serious: Yes (Other)
  Sender: FDA-Public Use
  Company Number: US-ELI_LILLY_AND_COMPANY-US201110004664

PATIENT
  Age: 67 Year
  Sex: Female

DRUGS (3)
  1. EVISTA [Suspect]
  2. HORMONES [Concomitant]
  3. DIET FORMULATIONS FOR TREATMENT OF OBESITY [Concomitant]

REACTIONS (2)
  - HOT FLUSH [None]
  - NON-HODGKIN'S LYMPHOMA [None]
